FAERS Safety Report 6577832-7 (Version None)
Quarter: 2010Q1

REPORT INFORMATION
  Report Type: 
  Country: None (occurrence: None)
  Receive Date: 20100211
  Receipt Date: 20100203
  Transmission Date: 20100710
  Serious: Yes (Hospitalization)
  Sender: FDA-Public Use
  Company Number: SE-ROCHE-683528

PATIENT

DRUGS (2)
  1. CAPECITABINE [Suspect]
     Indication: BREAST CANCER
     Route: 065
  2. DOCETAXEL [Suspect]
     Indication: BREAST CANCER
     Dosage: DRUG ENTRY TAKEN AS PER PROTOCOL.
     Route: 065

REACTIONS (3)
  - ARRHYTHMIA [None]
  - PYREXIA [None]
  - SUPRAVENTRICULAR EXTRASYSTOLES [None]
